FAERS Safety Report 5582712-X (Version None)
Quarter: 2008Q1

REPORT INFORMATION
  Report Type: 
  Country: None (occurrence: None)
  Receive Date: 20080107
  Receipt Date: 20071227
  Transmission Date: 20080703
  Serious: Yes (Hospitalization, Disabling, Other)
  Sender: FDA-Public Use
  Company Number: TR-NOVOPROD-268268

PATIENT
  Age: 46 Year
  Sex: Female
  Weight: 70 kg

DRUGS (3)
  1. ESTROFEM [Suspect]
     Indication: ARTIFICIAL MENOPAUSE
     Dosage: 2 MG, QD
     Route: 048
     Dates: start: 20041007
  2. CALCIMAX D3                        /00944201/ [Concomitant]
     Indication: OSTEOPENIA
     Dosage: 2500 MG+880 IU, UNK
     Dates: start: 20041007
  3. TEFOR [Concomitant]
     Indication: HYPOTHYROIDISM
     Dosage: .75 TAB, QD

REACTIONS (2)
  - BREAST CANCER [None]
  - BREAST CANCER FEMALE [None]
